FAERS Safety Report 20906056 (Version 3)
Quarter: 2022Q3

REPORT INFORMATION
  Report Type: Spontaneous
  Country: SA (occurrence: SA)
  Receive Date: 20220602
  Receipt Date: 20220809
  Transmission Date: 20221026
  Serious: Yes (Hospitalization)
  Sender: FDA-Public Use
  Company Number: SA-PFIZER INC-202200772065

PATIENT
  Age: 65 Year
  Sex: Female

DRUGS (1)
  1. ENBREL [Suspect]
     Active Substance: ETANERCEPT
     Indication: Product used for unknown indication
     Dosage: 50 MILLIGRAM, QWK
     Route: 058
     Dates: end: 20220522

REACTIONS (2)
  - Hip arthroplasty [Unknown]
  - Fear [Unknown]

NARRATIVE: CASE EVENT DATE: 20220522
